FAERS Safety Report 9779548 (Version 1)
Quarter: 2013Q4

REPORT INFORMATION
  Report Type: Spontaneous
  Country: FR (occurrence: FR)
  Receive Date: 20131223
  Receipt Date: 20131223
  Transmission Date: 20140711
  Serious: Yes (Hospitalization)
  Sender: FDA-Public Use
  Company Number: FR-ELI_LILLY_AND_COMPANY-FR201312004017

PATIENT
  Age: 53 Year
  Sex: Male

DRUGS (2)
  1. ALIMTA [Suspect]
     Dosage: 500 MG/M2, CYCLICAL
     Route: 042
     Dates: start: 20130822
  2. CISPLATIN [Suspect]
     Dosage: 75 MG/M2, CYCLICAL
     Route: 042
     Dates: start: 20130822

REACTIONS (2)
  - Pancytopenia [Recovered/Resolved]
  - Epistaxis [Recovered/Resolved]
